FAERS Safety Report 18327608 (Version 1)
Quarter: 2020Q3

REPORT INFORMATION
  Report Type: Report from Study
  Country: None (occurrence: BR)
  Receive Date: 20200930
  Receipt Date: 20200930
  Transmission Date: 20201103
  Serious: Yes (Other)
  Sender: FDA-Public Use
  Company Number: BR-ABBVIE-20K-020-3584228-00

PATIENT
  Age: 34 Year
  Sex: Male
  Weight: 130 kg

DRUGS (4)
  1. GLIFAGE XR [Concomitant]
     Active Substance: METFORMIN HYDROCHLORIDE
     Indication: DIABETES MELLITUS
  2. HUMIRA [Suspect]
     Active Substance: ADALIMUMAB
     Route: 058
     Dates: start: 2020
  3. HUMIRA [Suspect]
     Active Substance: ADALIMUMAB
     Indication: HIDRADENITIS
     Dosage: LOADING DOSAGE WEEK 0
     Route: 058
     Dates: start: 20200712, end: 20200712
  4. HUMIRA [Suspect]
     Active Substance: ADALIMUMAB
     Dosage: LOADING DOSAGE
     Route: 058
     Dates: start: 2020, end: 2020

REACTIONS (8)
  - Grip strength decreased [Unknown]
  - Paraesthesia oral [Not Recovered/Not Resolved]
  - Overweight [Unknown]
  - Incorrect dose administered [Unknown]
  - Hypoaesthesia [Unknown]
  - Pain in extremity [Not Recovered/Not Resolved]
  - Paraesthesia [Not Recovered/Not Resolved]
  - Peripheral swelling [Not Recovered/Not Resolved]

NARRATIVE: CASE EVENT DATE: 20200828
